FAERS Safety Report 24213854 (Version 1)
Quarter: 2024Q3

REPORT INFORMATION
  Report Type: Spontaneous
  Country: CH (occurrence: CH)
  Receive Date: 20240815
  Receipt Date: 20240815
  Transmission Date: 20241016
  Serious: Yes (Other)
  Sender: MERCK
  Company Number: None

PATIENT
  Age: 48 Year
  Sex: Female
  Weight: 74 kg

DRUGS (1)
  1. KEYTRUDA [Suspect]
     Active Substance: PEMBROLIZUMAB
     Indication: Malignant melanoma stage III
     Dosage: 200 MG EVERY 3 WEEKS
     Route: 040
     Dates: start: 20230303, end: 20240404

REACTIONS (2)
  - Polyarthritis [Unknown]
  - Rheumatoid arthritis [Unknown]

NARRATIVE: CASE EVENT DATE: 20240401
